FAERS Safety Report 17212441 (Version 1)
Quarter: 2019Q4

REPORT INFORMATION
  Report Type: Spontaneous
  Country: US (occurrence: US)
  Receive Date: 20191230
  Receipt Date: 20191230
  Transmission Date: 20200122
  Serious: No
  Sender: FDA-Public Use
  Company Number: US-BIOGEN-2019BI00820741

PATIENT
  Sex: Female

DRUGS (1)
  1. PLEGRIDY [Suspect]
     Active Substance: PEGINTERFERON BETA-1A
     Indication: MULTIPLE SCLEROSIS
     Route: 058
     Dates: start: 20190109

REACTIONS (5)
  - Migraine [Not Recovered/Not Resolved]
  - Tremor [Unknown]
  - Injection site erythema [Not Recovered/Not Resolved]
  - Muscle tightness [Not Recovered/Not Resolved]
  - Influenza like illness [Not Recovered/Not Resolved]
